FAERS Safety Report 22620670 (Version 2)
Quarter: 2023Q2

REPORT INFORMATION
  Report Type: Report from Study
  Country: IL (occurrence: IL)
  Receive Date: 20230620
  Receipt Date: 20230627
  Transmission Date: 20230721
  Serious: Yes (Other)
  Sender: FDA-Public Use
  Company Number: IL-ABBVIE-5294656

PATIENT
  Sex: Female

DRUGS (3)
  1. CARBIDOPA\LEVODOPA [Suspect]
     Active Substance: CARBIDOPA\LEVODOPA
     Indication: Parkinson^s disease
     Route: 050
     Dates: start: 20230415
  2. CARBIDOPA\LEVODOPA [Suspect]
     Active Substance: CARBIDOPA\LEVODOPA
  3. Clonex [Concomitant]
     Indication: Anxiety

REACTIONS (10)
  - Speech disorder [Recovering/Resolving]
  - Mood altered [Recovered/Resolved]
  - Tremor [Recovering/Resolving]
  - Dystonia [Recovering/Resolving]
  - Musculoskeletal stiffness [Recovering/Resolving]
  - Facial asymmetry [Unknown]
  - Stoma site pain [Recovering/Resolving]
  - Stoma site irritation [Recovering/Resolving]
  - Pain in extremity [Recovering/Resolving]
  - On and off phenomenon [Recovering/Resolving]
